FAERS Safety Report 6216943-2 (Version None)
Quarter: 2009Q2

REPORT INFORMATION
  Report Type: 
  Country: None (occurrence: None)
  Receive Date: 20090605
  Receipt Date: 20090528
  Transmission Date: 20091009
  Serious: Yes (Death, Hospitalization)
  Sender: FDA-Public Use
  Company Number: FR-ABBOTT-09P-056-0578052-00

PATIENT
  Age: 35 Year
  Sex: Female

DRUGS (9)
  1. ERYTHROCINE [Suspect]
     Indication: DRUG USE FOR UNKNOWN INDICATION
     Dosage: 1G LYOPHILISATE FOR SUSPENSION
     Route: 042
     Dates: start: 20090208, end: 20090213
  2. SANDIMMUNE [Suspect]
     Indication: DRUG USE FOR UNKNOWN INDICATION
     Dosage: 50 MG/ML SOLUTION FOR INFUSION THEN 90 THEN 75MG
     Route: 042
     Dates: start: 20090127, end: 20090222
  3. TRIFLUCAN [Suspect]
     Indication: DRUG USE FOR UNKNOWN INDICATION
     Route: 065
     Dates: start: 20090127, end: 20090223
  4. MYFORTIC [Concomitant]
     Indication: DRUG USE FOR UNKNOWN INDICATION
  5. ZOVIRAX [Concomitant]
     Indication: DRUG USE FOR UNKNOWN INDICATION
  6. BACTRIM [Concomitant]
     Indication: DRUG USE FOR UNKNOWN INDICATION
  7. NEXIUM [Concomitant]
     Indication: DRUG USE FOR UNKNOWN INDICATION
  8. CIFLOX [Concomitant]
     Indication: DRUG USE FOR UNKNOWN INDICATION
  9. TARGOCID [Concomitant]
     Indication: DRUG USE FOR UNKNOWN INDICATION

REACTIONS (2)
  - DRUG LEVEL INCREASED [None]
  - LYMPHOMA [None]
